FAERS Safety Report 14007440 (Version 1)
Quarter: 2017Q3

REPORT INFORMATION
  Report Type: Spontaneous
  Country: US (occurrence: None)
  Receive Date: 20170922
  Receipt Date: 20170922
  Transmission Date: 20171128
  Serious: Yes (Hospitalization)
  Sender: FDA-Public Use
  Company Number: None

PATIENT
  Age: 78 Year
  Sex: Male
  Weight: 94.2 kg

DRUGS (2)
  1. ENZALUTAMIDE [Suspect]
     Active Substance: ENZALUTAMIDE
     Indication: PROSTATE CANCER
     Route: 048
     Dates: start: 20150505, end: 20170917
  2. DUTASTERIDE. [Suspect]
     Active Substance: DUTASTERIDE
     Route: 048
     Dates: start: 20150505, end: 20170917

REACTIONS (5)
  - Bladder mass [None]
  - Malignant neoplasm progression [None]
  - Prostatic mass [None]
  - Haematuria [None]
  - Blood creatinine increased [None]

NARRATIVE: CASE EVENT DATE: 20170917
